FAERS Safety Report 24770214 (Version 3)
Quarter: 2025Q3

REPORT INFORMATION
  Report Type: Spontaneous
  Country: US (occurrence: US)
  Receive Date: 20241224
  Receipt Date: 20250702
  Transmission Date: 20251021
  Serious: Yes (Hospitalization)
  Sender: ROCHE
  Company Number: US-ROCHE-10000159537

PATIENT
  Sex: Male

DRUGS (3)
  1. ALECENSA [Suspect]
     Active Substance: ALECTINIB HYDROCHLORIDE
     Indication: Lung neoplasm malignant
     Route: 048
     Dates: start: 202410
  2. ALECENSA [Suspect]
     Active Substance: ALECTINIB HYDROCHLORIDE
     Indication: Bronchial carcinoma
  3. ALPRAZOLAM [Concomitant]
     Active Substance: ALPRAZOLAM

REACTIONS (10)
  - Nasopharyngitis [Unknown]
  - Dyspnoea [Unknown]
  - Thrombosis [Unknown]
  - Visual impairment [Unknown]
  - Anxiety [Unknown]
  - Peripheral swelling [Unknown]
  - Joint swelling [Unknown]
  - Vision blurred [Unknown]
  - Mood altered [Unknown]
  - Weight decreased [Unknown]
